FAERS Safety Report 12463076 (Version 1)
Quarter: 2016Q2

REPORT INFORMATION
  Report Type: Spontaneous
  Country: GB (occurrence: GB)
  Receive Date: 20160614
  Receipt Date: 20160614
  Transmission Date: 20160815
  Serious: Yes (Disabling)
  Sender: FDA-Public Use
  Company Number: GB-BAXTER-2016BAX030244

PATIENT
  Age: 39 Year
  Sex: Female

DRUGS (29)
  1. SODIUM DOCUSATE [Concomitant]
     Active Substance: DOCUSATE SODIUM
     Indication: PRODUCT USED FOR UNKNOWN INDICATION
     Route: 065
  2. MAGNASPARTATE [Concomitant]
     Indication: PRODUCT USED FOR UNKNOWN INDICATION
     Route: 065
  3. BIOTENE DRY MOUTH [Concomitant]
     Indication: PRODUCT USED FOR UNKNOWN INDICATION
     Route: 065
  4. SEVREDOL [Concomitant]
     Active Substance: MORPHINE
     Indication: PRODUCT USED FOR UNKNOWN INDICATION
     Route: 065
  5. METOCLOPRAMIDE. [Concomitant]
     Active Substance: METOCLOPRAMIDE
     Indication: PRODUCT USED FOR UNKNOWN INDICATION
     Route: 065
  6. AMITRIPTYLINE [Concomitant]
     Active Substance: AMITRIPTYLINE
     Indication: PRODUCT USED FOR UNKNOWN INDICATION
     Route: 065
  7. TEICOPLANIN [Concomitant]
     Active Substance: TEICOPLANIN
     Indication: PRODUCT USED FOR UNKNOWN INDICATION
     Dosage: STOPPED
     Route: 065
  8. DOUBLEBASE [Concomitant]
     Active Substance: ISOPROPYL MYRISTATE\PARAFFIN
     Indication: PRODUCT USED FOR UNKNOWN INDICATION
     Route: 065
  9. ENOXAPARIN [Concomitant]
     Active Substance: ENOXAPARIN
     Indication: PRODUCT USED FOR UNKNOWN INDICATION
     Route: 058
  10. CLONAZEPAM. [Concomitant]
     Active Substance: CLONAZEPAM
     Indication: PRODUCT USED FOR UNKNOWN INDICATION
     Route: 048
  11. LANSOPRAZOLE. [Concomitant]
     Active Substance: LANSOPRAZOLE
     Indication: PRODUCT USED FOR UNKNOWN INDICATION
     Route: 065
  12. PARACETAMOL [Concomitant]
     Active Substance: ACETAMINOPHEN
     Indication: PRODUCT USED FOR UNKNOWN INDICATION
     Route: 065
  13. EXEMESTANE. [Concomitant]
     Active Substance: EXEMESTANE
     Indication: PRODUCT USED FOR UNKNOWN INDICATION
     Route: 065
  14. CYCLIZINE [Concomitant]
     Active Substance: CYCLIZINE
     Indication: PRODUCT USED FOR UNKNOWN INDICATION
     Dosage: 3 IN 1 DAY
     Route: 065
  15. METRONIDAZOLE 500 MG / 100 ML INTRAVENOUS INFUSION [Suspect]
     Active Substance: METRONIDAZOLE
     Indication: INFECTION
     Dosage: CUMULATIVE DOSE TO FIRST REACTION WAS 31500 MG
     Route: 042
     Dates: start: 20160121
  16. ADCAL D3 [Concomitant]
     Active Substance: CALCIUM CARBONATE\CHOLECALCIFEROL
     Indication: PRODUCT USED FOR UNKNOWN INDICATION
     Route: 065
  17. MST CONTINUS [Concomitant]
     Active Substance: MORPHINE SULFATE
     Indication: PRODUCT USED FOR UNKNOWN INDICATION
     Route: 065
  18. CLONAZEPAM. [Concomitant]
     Active Substance: CLONAZEPAM
     Route: 058
  19. CLINDAMYCIN [Concomitant]
     Active Substance: CLINDAMYCIN\CLINDAMYCIN PHOSPHATE
     Indication: PRODUCT USED FOR UNKNOWN INDICATION
     Dosage: STOPPED
     Route: 065
  20. DAPTOMYCIN. [Concomitant]
     Active Substance: DAPTOMYCIN
     Indication: PRODUCT USED FOR UNKNOWN INDICATION
     Dosage: STOPPED
     Route: 065
  21. MEROPENEM. [Concomitant]
     Active Substance: MEROPENEM
     Indication: PRODUCT USED FOR UNKNOWN INDICATION
     Dosage: ONGOING
     Route: 065
  22. KETAMINE [Concomitant]
     Active Substance: KETAMINE
     Indication: PRODUCT USED FOR UNKNOWN INDICATION
     Route: 065
  23. FORCEVAL [Concomitant]
     Active Substance: FOLIC ACID\IRON\MINERALS\VITAMINS
     Indication: PRODUCT USED FOR UNKNOWN INDICATION
     Route: 065
  24. PREGABALIN. [Concomitant]
     Active Substance: PREGABALIN
     Indication: PRODUCT USED FOR UNKNOWN INDICATION
     Route: 065
  25. FLUCONAZOLE. [Concomitant]
     Active Substance: FLUCONAZOLE
     Indication: PRODUCT USED FOR UNKNOWN INDICATION
     Route: 048
  26. DEXAMETHASONE. [Concomitant]
     Active Substance: DEXAMETHASONE
     Indication: PRODUCT USED FOR UNKNOWN INDICATION
     Route: 065
  27. TRIMETHOPRIM. [Concomitant]
     Active Substance: TRIMETHOPRIM
     Indication: PRODUCT USED FOR UNKNOWN INDICATION
     Route: 048
  28. DIAMORPHINE [Concomitant]
     Active Substance: DIACETYLMORPHINE
     Indication: PRODUCT USED FOR UNKNOWN INDICATION
     Dosage: 30 MG TO 40 MG
     Route: 065
  29. ONDANSETRON [Concomitant]
     Active Substance: ONDANSETRON
     Indication: PRODUCT USED FOR UNKNOWN INDICATION
     Route: 065

REACTIONS (2)
  - Neuropathy peripheral [Not Recovered/Not Resolved]
  - Peroneal nerve palsy [Not Recovered/Not Resolved]

NARRATIVE: CASE EVENT DATE: 20160211
